FAERS Safety Report 25062392 (Version 1)
Quarter: 2025Q1

REPORT INFORMATION
  Report Type: Report from Study
  Country: US (occurrence: US)
  Receive Date: 20250311
  Receipt Date: 20250311
  Transmission Date: 20250408
  Serious: No
  Sender: SUNOVION
  Company Number: US-SUMITOMO PHARMA SWITZERLAND GMBH-2025SPA001753

PATIENT

DRUGS (3)
  1. ORGOVYX [Suspect]
     Active Substance: RELUGOLIX
     Indication: Prostate cancer
     Dosage: 120 MG, SINGLE(120MG FOR FIRST DOSAGE)
     Route: 048
     Dates: start: 20250130, end: 20250130
  2. ORGOVYX [Suspect]
     Active Substance: RELUGOLIX
     Route: 048
  3. ORGOVYX [Suspect]
     Active Substance: RELUGOLIX
     Dosage: 120 MG, SINGLE
     Route: 048
     Dates: start: 20250130, end: 20250130

REACTIONS (2)
  - Seasonal allergy [Unknown]
  - Incorrect dose administered [Unknown]
